FAERS Safety Report 24655084 (Version 1)
Quarter: 2024Q4

REPORT INFORMATION
  Report Type: Report from Study
  Country: ZA (occurrence: ZA)
  Receive Date: 20241122
  Receipt Date: 20241122
  Transmission Date: 20250114
  Serious: Yes (Death, Other)
  Sender: ALEXION PHARMACEUTICALS
  Company Number: ZA-AstraZeneca-CH-00751780A

PATIENT
  Age: 81 Year

DRUGS (14)
  1. DAPAGLIFLOZIN [Suspect]
     Active Substance: DAPAGLIFLOZIN
     Indication: Diabetes mellitus
  2. DAPAGLIFLOZIN [Suspect]
     Active Substance: DAPAGLIFLOZIN
  3. DAPAGLIFLOZIN [Suspect]
     Active Substance: DAPAGLIFLOZIN
  4. DAPAGLIFLOZIN [Suspect]
     Active Substance: DAPAGLIFLOZIN
  5. TELMISARTAN [Concomitant]
     Active Substance: TELMISARTAN
     Indication: Hypertension
  6. TELMISARTAN [Concomitant]
     Active Substance: TELMISARTAN
  7. ASPIRIN [Concomitant]
     Active Substance: ASPIRIN
     Indication: Anticoagulant therapy
  8. ASPIRIN [Concomitant]
     Active Substance: ASPIRIN
  9. Spiractin [Concomitant]
     Indication: Hypertension
  10. Spiractin [Concomitant]
  11. FUROSEMIDE [Concomitant]
     Active Substance: FUROSEMIDE
     Indication: Hypertension
  12. FUROSEMIDE [Concomitant]
     Active Substance: FUROSEMIDE
  13. Presicard [Concomitant]
     Indication: Hypertension
  14. Presicard [Concomitant]

REACTIONS (1)
  - Death [Fatal]
